FAERS Safety Report 22283655 (Version 1)
Quarter: 2023Q2

REPORT INFORMATION
  Report Type: Spontaneous
  Country: TW (occurrence: TW)
  Receive Date: 20230504
  Receipt Date: 20230504
  Transmission Date: 20230722
  Serious: Yes (Other)
  Sender: FDA-Public Use
  Company Number: TW-ARBOR PHARMACEUTICALS, LLC-TW-2023ARB003874

PATIENT

DRUGS (1)
  1. GLIADEL [Suspect]
     Active Substance: CARMUSTINE
     Indication: Product used for unknown indication
     Dosage: TOTAL DOSE UNKNOWN (7.7 MG)
     Route: 018
     Dates: start: 20220729

REACTIONS (1)
  - Intracranial infection [Recovered/Resolved]

NARRATIVE: CASE EVENT DATE: 20220101
